FAERS Safety Report 5457169-X (Version None)
Quarter: 2007Q3

REPORT INFORMATION
  Report Type: 
  Country: None (occurrence: None)
  Receive Date: 20070918
  Receipt Date: 20061230
  Transmission Date: 20080115
  Serious: No
  Sender: FDA-Public Use
  Company Number: US-ASTRAZENECA-2007UW00078

PATIENT
  Sex: Female

DRUGS (19)
  1. SEROQUEL [Suspect]
     Indication: BIPOLAR DISORDER
     Route: 048
  2. XANAX [Concomitant]
     Indication: PANIC ATTACK
  3. XANAX [Concomitant]
     Indication: ANXIETY
  4. XANAX [Concomitant]
     Indication: ACROPHOBIA
  5. MEPROBAM [Concomitant]
     Indication: PANIC ATTACK
  6. MEPROBAM [Concomitant]
     Indication: ANXIETY
  7. ZOLOFT [Concomitant]
     Indication: PANIC ATTACK
  8. ZOLOFT [Concomitant]
     Indication: DEPRESSION
  9. ZOLOFT [Concomitant]
     Indication: ANXIETY
  10. PAXIL [Concomitant]
  11. CELEXA [Concomitant]
  12. ATIVAN [Concomitant]
     Dates: start: 19950101
  13. EFFEXOR [Concomitant]
     Indication: BIPOLAR I DISORDER
  14. GEODON [Concomitant]
  15. TOPAMAX [Concomitant]
  16. HALDOL [Concomitant]
  17. COGENTIN [Concomitant]
  18. EFFEXOR XR [Concomitant]
  19. TYLENOL [Concomitant]
     Indication: INSOMNIA
     Dosage: 3-4 TABS

REACTIONS (3)
  - DRUG INEFFECTIVE [None]
  - FEELING ABNORMAL [None]
  - HYPERSOMNIA [None]
